FAERS Safety Report 9539629 (Version 3)
Quarter: 2013Q4

REPORT INFORMATION
  Report Type: Spontaneous
  Country: US (occurrence: US)
  Receive Date: 20130920
  Receipt Date: 20131011
  Transmission Date: 20140711
  Serious: Yes (Hospitalization)
  Sender: FDA-Public Use
  Company Number: US-DYAX CORP.-2010DX000038

PATIENT
  Age: 26 Year
  Sex: Male
  Weight: 86.26 kg

DRUGS (2)
  1. KALBITOR [Suspect]
     Indication: HEREDITARY ANGIOEDEMA
     Route: 058
     Dates: start: 20100807, end: 20100807
  2. PHENERGAN /00033001/ [Concomitant]
     Indication: NAUSEA
     Route: 030
     Dates: start: 20100807, end: 20100807

REACTIONS (7)
  - Dehydration [Recovered/Resolved]
  - Hallucination [Recovered/Resolved]
  - Liver function test abnormal [Recovering/Resolving]
  - Blood glucose increased [Unknown]
  - Neutrophil count increased [Unknown]
  - Lymphocyte count decreased [Unknown]
  - Abdominal pain [Recovered/Resolved]
